FAERS Safety Report 9249402 (Version 1)
Quarter: 2013Q2

REPORT INFORMATION
  Report Type: Spontaneous
  Country: JP (occurrence: JP)
  Receive Date: 20130423
  Receipt Date: 20130423
  Transmission Date: 20140414
  Serious: Yes (Other)
  Sender: FDA-Public Use
  Company Number: JP-TEVA-399199ISR

PATIENT
  Age: 57 Year
  Sex: Male

DRUGS (1)
  1. CEFTRIAXONE [Suspect]
     Indication: PNEUMONIA
     Route: 042

REACTIONS (1)
  - Cholangitis acute [Unknown]
